FAERS Safety Report 15641009 (Version 1)
Quarter: 2018Q4

REPORT INFORMATION
  Report Type: Spontaneous
  Country: US (occurrence: US)
  Receive Date: 20181120
  Receipt Date: 20181120
  Transmission Date: 20190205
  Serious: No
  Sender: FDA-Public Use
  Company Number: US-FRESENIUS KABI-FK201811844

PATIENT
  Sex: Female

DRUGS (1)
  1. HEPARIN SODIUM INJECTION, USP [Suspect]
     Active Substance: HEPARIN SODIUM
     Indication: PRODUCT USED FOR UNKNOWN INDICATION
     Dosage: A SINGLE DOSE.
     Route: 065

REACTIONS (5)
  - Mental disorder [Unknown]
  - Urticaria [Unknown]
  - Haemorrhage [Unknown]
  - Pruritus generalised [Unknown]
  - Burning sensation [Unknown]
